FAERS Safety Report 5086964-4 (Version None)
Quarter: 2006Q3

REPORT INFORMATION
  Report Type: 
  Country: None (occurrence: None)
  Receive Date: 20060821
  Receipt Date: 20060815
  Transmission Date: 20061208
  Serious: Yes (Hospitalization)
  Sender: FDA-Public Use
  Company Number: 2006-08-0414

PATIENT
  Age: 62 Year
  Sex: Male

DRUGS (1)
  1. CELESTAMINE TAB [Suspect]
     Dosage: 2 TABS ORAL
     Route: 048
     Dates: start: 19990101

REACTIONS (5)
  - CHEST X-RAY ABNORMAL [None]
  - COUGH [None]
  - CRYPTOCOCCOSIS [None]
  - IMMUNODEFICIENCY [None]
  - INFECTION IN AN IMMUNOCOMPROMISED HOST [None]
